FAERS Safety Report 8464893-3 (Version None)
Quarter: 2012Q2

REPORT INFORMATION
  Report Type: 
  Country: None (occurrence: None)
  Receive Date: 20120323
  Receipt Date: 20111027
  Transmission Date: 20120825
  Serious: Yes (Hospitalization)
  Sender: FDA-Public Use
  Company Number: 163-21880-11093623

PATIENT
  Age: 66 Year
  Sex: Female
  Weight: 77.1115 kg

DRUGS (5)
  1. CALCIUM CARBONATE [Concomitant]
  2. MULTIVITAMIN [Concomitant]
  3. SEROQUEL [Concomitant]
  4. XANAX [Concomitant]
  5. REVLIMID [Suspect]
     Indication: MULTIPLE MYELOMA
     Dosage: 25 MG, 1 IN 1 D, PO
     Route: 048
     Dates: start: 20101001

REACTIONS (2)
  - UPPER RESPIRATORY TRACT INFECTION [None]
  - PYREXIA [None]
